FAERS Safety Report 8552556-5 (Version None)
Quarter: 2012Q3

REPORT INFORMATION
  Report Type: 
  Country: None (occurrence: None)
  Receive Date: 20120724
  Receipt Date: 20120724
  Transmission Date: 20120928
  Serious: Yes (Other)
  Sender: FDA-Public Use
  Company Number: None

PATIENT
  Age: 54 Year
  Sex: Male
  Weight: 81.6475 kg

DRUGS (1)
  1. CARVEDILOL [Suspect]
     Indication: CARDIAC FAILURE
     Dosage: 1   2 TIMES A DAY PO
     Route: 048
     Dates: start: 20120625, end: 20120718

REACTIONS (5)
  - PRODUCT SUBSTITUTION ISSUE [None]
  - PRODUCT QUALITY ISSUE [None]
  - HYPERSENSITIVITY [None]
  - PRURITUS [None]
  - PRODUCT SHAPE ISSUE [None]
